FAERS Safety Report 5140519-1 (Version None)
Quarter: 2006Q4

REPORT INFORMATION
  Report Type: 
  Country: None (occurrence: None)
  Receive Date: 20061031
  Receipt Date: 20060911
  Transmission Date: 20070319
  Serious: Yes (Other)
  Sender: FDA-Public Use
  Company Number: US-BRISTOL-MYERS SQUIBB COMPANY-13504907

PATIENT
  Sex: Female

DRUGS (1)
  1. KENALOG-40 [Suspect]

REACTIONS (1)
  - FUNGAL INFECTION [None]
